FAERS Safety Report 6389501-7 (Version None)
Quarter: 2009Q4

REPORT INFORMATION
  Report Type: 
  Country: None (occurrence: None)
  Receive Date: 20091003
  Receipt Date: 20090919
  Transmission Date: 20100525
  Serious: Yes (Other)
  Sender: FDA-Public Use
  Company Number: ENTC2009-0318

PATIENT
  Age: 64 Year
  Sex: Male

DRUGS (6)
  1. STALEVO 100 [Suspect]
     Indication: PARKINSON'S DISEASE
     Dosage: ORAL; 200 MG, SIX TIMES DAILY, ORAL
     Route: 048
     Dates: start: 20080101
  2. STALEVO 100 [Suspect]
     Indication: PARKINSON'S DISEASE
     Dosage: ORAL; 200 MG, SIX TIMES DAILY, ORAL
     Route: 048
     Dates: start: 20090601
  3. WARFARIN SODIUM [Concomitant]
  4. METOPROLOL TARTRATE [Concomitant]
  5. SIMVASTATIN [Concomitant]
  6. ANTIBIOTICS (NO INGREDIENTS/SUBSTANCES) [Concomitant]

REACTIONS (5)
  - AORTIC VALVE REPAIR [None]
  - DRUG INEFFECTIVE [None]
  - PRODUCT QUALITY ISSUE [None]
  - TOOTH EXTRACTION [None]
  - TREMOR [None]
